FAERS Safety Report 20493388 (Version 1)
Quarter: 2022Q1

REPORT INFORMATION
  Report Type: Spontaneous
  Country: NL (occurrence: NL)
  Receive Date: 20220220
  Receipt Date: 20220220
  Transmission Date: 20220423
  Serious: Yes (Other)
  Sender: FDA-Public Use
  Company Number: None

PATIENT
  Age: 74 Year
  Sex: Female

DRUGS (1)
  1. HALDOL [Suspect]
     Active Substance: HALOPERIDOL
     Indication: Anxiety
     Route: 065

REACTIONS (6)
  - Hallucination, visual [Unknown]
  - Eye pain [Unknown]
  - Visual impairment [Unknown]
  - Limb discomfort [Unknown]
  - Malaise [Unknown]
  - Muscle spasms [Unknown]
